FAERS Safety Report 7634322-8 (Version None)
Quarter: 2011Q3

REPORT INFORMATION
  Report Type: 
  Country: None (occurrence: None)
  Receive Date: 20110725
  Receipt Date: 20110721
  Transmission Date: 20111222
  Serious: Yes (Other)
  Sender: FDA-Public Use
  Company Number: US-PFIZER INC-2009311516

PATIENT
  Sex: Female
  Weight: 70.29 kg

DRUGS (2)
  1. CHANTIX [Suspect]
     Dosage: UNK
     Dates: end: 20110101
  2. CHANTIX [Suspect]
     Indication: SMOKING CESSATION THERAPY
     Dosage: UNK
     Dates: start: 20080101

REACTIONS (11)
  - MOOD SWINGS [None]
  - AGITATION [None]
  - HOSTILITY [None]
  - MANIA [None]
  - PERSONALITY CHANGE [None]
  - OVARIAN CYST [None]
  - ABNORMAL BEHAVIOUR [None]
  - MIGRAINE [None]
  - DEPRESSION [None]
  - AGGRESSION [None]
  - ANGER [None]
